FAERS Safety Report 8115422-5 (Version None)
Quarter: 2012Q1

REPORT INFORMATION
  Report Type: 
  Country: None (occurrence: None)
  Receive Date: 20120206
  Receipt Date: 20120124
  Transmission Date: 20120608
  Serious: Yes (Other)
  Sender: FDA-Public Use
  Company Number: US-ELI_LILLY_AND_COMPANY-US201201008097

PATIENT
  Sex: Male

DRUGS (1)
  1. CYMBALTA [Suspect]
     Dosage: UNK, UNKNOWN

REACTIONS (5)
  - FEELING ABNORMAL [None]
  - DEPRESSION [None]
  - HEPATIC CIRRHOSIS [None]
  - LIVER DISORDER [None]
  - HEPATIC ENZYME INCREASED [None]
